FAERS Safety Report 14499611 (Version 1)
Quarter: 2018Q1

REPORT INFORMATION
  Report Type: Spontaneous
  Country: US (occurrence: US)
  Receive Date: 20180207
  Receipt Date: 20180207
  Transmission Date: 20180509
  Serious: No
  Sender: FDA-Public Use
  Company Number: US-PERRIGO-17US026188

PATIENT
  Age: 78 Year
  Sex: Female
  Weight: 55.33 kg

DRUGS (1)
  1. CETIRIZINE HYDROCHLORIDE. [Suspect]
     Active Substance: CETIRIZINE HYDROCHLORIDE
     Indication: SEASONAL ALLERGY
     Dosage: 10 MG, QD
     Route: 048
     Dates: start: 20170820, end: 20170821

REACTIONS (6)
  - Eye irritation [Recovered/Resolved]
  - Headache [Recovered/Resolved]
  - Drug administered to patient of inappropriate age [Recovered/Resolved]
  - Palpitations [Recovered/Resolved]
  - Sneezing [Recovered/Resolved]
  - Drug ineffective [Unknown]

NARRATIVE: CASE EVENT DATE: 20170820
